FAERS Safety Report 8357858-3 (Version None)
Quarter: 2012Q2

REPORT INFORMATION
  Report Type: 
  Country: None (occurrence: None)
  Receive Date: 20120514
  Receipt Date: 20120502
  Transmission Date: 20120825
  Serious: Yes (Hospitalization)
  Sender: FDA-Public Use
  Company Number: US-PURDUE-USA-2012-0086610

PATIENT
  Sex: Female
  Weight: 69.4 kg

DRUGS (22)
  1. DIPHENHYDRAMINE                    /00000402/ [Concomitant]
     Indication: PRURITUS
  2. AMITRIPTYLENE [Concomitant]
     Indication: HEADACHE
  3. HYDROXYZINE [Concomitant]
     Indication: PRURITUS
  4. NALBUPHINE [Concomitant]
     Indication: PRURITUS
  5. SENNA                              /00142201/ [Concomitant]
     Indication: CONSTIPATION
  6. OXYCODONE HCL [Suspect]
     Indication: PAIN
     Dosage: 40 MG, BID
     Route: 048
     Dates: start: 20120420, end: 20120427
  7. HYDROMORPHONE HCL [Concomitant]
     Indication: PAIN
  8. KETOROLAC TROMETHAMINE [Concomitant]
     Indication: PAIN
  9. OXYCODONE HCL [Concomitant]
     Indication: PAIN
  10. DOCUSATE SODIUM [Concomitant]
     Indication: CONSTIPATION
  11. DOCUSATE [Concomitant]
     Indication: CONSTIPATION
  12. LORAZEPAM [Concomitant]
     Indication: NAUSEA
  13. PENICILLIN [Concomitant]
     Indication: INFECTION PROPHYLAXIS
  14. POLYETHYLENE GLYCOL [Concomitant]
     Indication: CONSTIPATION
  15. OXYCODONE HCL [Concomitant]
     Indication: PAIN
  16. IBUPROFEN [Concomitant]
     Indication: PAIN
  17. NALOXONE [Concomitant]
     Indication: PRURITUS
  18. OXYCODONE HCL [Suspect]
     Dosage: 50 MG, BID
     Route: 048
     Dates: start: 20120427, end: 20120503
  19. NAPROXEN [Concomitant]
     Indication: PAIN
  20. CEFTRIAXONE SODIUM [Concomitant]
     Indication: PYREXIA
     Dosage: 2000 MG, UNK
  21. HYDROCODONE BITARTRATE AND ACETAMINOPHEN [Concomitant]
     Indication: PAIN
  22. ONDANSETRON [Concomitant]
     Indication: NAUSEA

REACTIONS (1)
  - STATUS MIGRAINOSUS [None]
